FAERS Safety Report 9197109 (Version 1)
Quarter: 2013Q1

REPORT INFORMATION
  Report Type: Spontaneous
  Country: SK (occurrence: SK)
  Receive Date: 20130328
  Receipt Date: 20130328
  Transmission Date: 20140127
  Serious: Yes (Life-Threatening, Other)
  Sender: FDA-Public Use
  Company Number: SK-ROCHE-1206426

PATIENT
  Sex: Female

DRUGS (2)
  1. AVASTIN [Suspect]
     Indication: BREAST CANCER
     Route: 065
     Dates: start: 20110418
  2. AVASTIN [Suspect]
     Dosage: STANDARD DOSE
     Route: 065
     Dates: start: 201108, end: 201111

REACTIONS (6)
  - Cardiomegaly [Unknown]
  - Duodenogastric reflux [Unknown]
  - Dyspepsia [Unknown]
  - Cardiac failure [Recovering/Resolving]
  - Vestibular disorder [Recovering/Resolving]
  - Thrombosis [Recovering/Resolving]
